FAERS Safety Report 8394754-X (Version None)
Quarter: 2012Q2

REPORT INFORMATION
  Report Type: 
  Country: None (occurrence: None)
  Receive Date: 20120525
  Receipt Date: 20120525
  Transmission Date: 20120825
  Serious: Yes (Other)
  Sender: FDA-Public Use
  Company Number: None

PATIENT
  Sex: Female
  Weight: 55.3388 kg

DRUGS (1)
  1. MIRENA [Suspect]
     Dates: start: 20120515

REACTIONS (2)
  - EXPOSURE DURING BREAST FEEDING [None]
  - SUPPRESSED LACTATION [None]
